FAERS Safety Report 15933556 (Version 1)
Quarter: 2019Q1

REPORT INFORMATION
  Report Type: Spontaneous
  Country: None (occurrence: CO)
  Receive Date: 20190207
  Receipt Date: 20190207
  Transmission Date: 20190417
  Serious: Yes (Other)
  Sender: FDA-Public Use
  Company Number: CO-POPULATION COUNCIL, INC.-2062284

PATIENT
  Sex: Female

DRUGS (1)
  1. JADELLE [Suspect]
     Active Substance: LEVONORGESTREL
     Dates: start: 20170105

REACTIONS (6)
  - Genital haemorrhage [Unknown]
  - Hair texture abnormal [Unknown]
  - Rash [Not Recovered/Not Resolved]
  - Menstruation delayed [Unknown]
  - Scar [Unknown]
  - Hypersensitivity [Unknown]
